FAERS Safety Report 16412225 (Version 1)
Quarter: 2019Q2

REPORT INFORMATION
  Report Type: Report from Study
  Country: US (occurrence: US)
  Receive Date: 20190610
  Receipt Date: 20190610
  Transmission Date: 20190711
  Serious: Yes (Other)
  Sender: FDA-Public Use
  Company Number: PHHY2019US111155

PATIENT
  Age: 57 Year
  Sex: Female
  Weight: 62.8 kg

DRUGS (3)
  1. BYL719 [Suspect]
     Active Substance: ALPELISIB
     Dosage: 250 MG, UNK
     Route: 048
  2. BYL719 [Suspect]
     Active Substance: ALPELISIB
     Indication: BREAST CANCER METASTATIC
     Dosage: 300 MG, UNK
     Route: 048
     Dates: start: 20190308
  3. METFORMIN HYDROCHLORIDE. [Suspect]
     Active Substance: METFORMIN HYDROCHLORIDE
     Indication: PRODUCT USED FOR UNKNOWN INDICATION
     Dosage: UNK
     Route: 065

REACTIONS (18)
  - Hypomagnesaemia [Unknown]
  - Hypokalaemia [Unknown]
  - Headache [Recovered/Resolved]
  - Thirst [Unknown]
  - Hypocalcaemia [Unknown]
  - Vomiting [Recovered/Resolved]
  - Seasonal allergy [Unknown]
  - Diarrhoea [Recovered/Resolved]
  - Diarrhoea [Unknown]
  - Dizziness [Recovered/Resolved]
  - Fatigue [Unknown]
  - Abdominal pain [Unknown]
  - Infection [Recovered/Resolved]
  - Decreased appetite [Unknown]
  - Hyperglycaemia [Recovering/Resolving]
  - Dysgeusia [Unknown]
  - Swelling face [Recovered/Resolved]
  - Nausea [Unknown]

NARRATIVE: CASE EVENT DATE: 20190330
